FAERS Safety Report 23584936 (Version 1)
Quarter: 2024Q1

REPORT INFORMATION
  Report Type: Spontaneous
  Country: US (occurrence: None)
  Receive Date: 20240301
  Receipt Date: 20240301
  Transmission Date: 20240410
  Serious: No
  Sender: FDA-Public Use
  Company Number: 2024A039545

PATIENT
  Age: 73 Year
  Sex: Female

DRUGS (1)
  1. FARXIGA [Suspect]
     Active Substance: DAPAGLIFLOZIN PROPANEDIOL
     Route: 048

REACTIONS (19)
  - Hypotension [Unknown]
  - Fatigue [Unknown]
  - Taste disorder [Unknown]
  - Parosmia [Unknown]
  - Nausea [Unknown]
  - Heart rate increased [Unknown]
  - Urine abnormality [Unknown]
  - Feeling abnormal [Unknown]
  - Blood cholesterol increased [Unknown]
  - Muscle tightness [Unknown]
  - Urinary tract infection [Unknown]
  - Stress [Unknown]
  - Dehydration [Unknown]
  - Tinnitus [Unknown]
  - Sleep disorder [Unknown]
  - Glucose tolerance impaired [Unknown]
  - Nasal congestion [Unknown]
  - Chromaturia [Unknown]
  - Anxiety [Unknown]
